FAERS Safety Report 5562094-X (Version None)
Quarter: 2007Q4

REPORT INFORMATION
  Report Type: 
  Country: None (occurrence: None)
  Receive Date: 20071215
  Receipt Date: 20070928
  Transmission Date: 20080405
  Serious: No
  Sender: FDA-Public Use
  Company Number: US-AMGEN-KDL245491

PATIENT
  Sex: Female

DRUGS (4)
  1. ENBREL [Suspect]
     Indication: RHEUMATOID ARTHRITIS
     Route: 058
     Dates: start: 19990101
  2. REMICADE [Suspect]
  3. METHOTREXATE [Concomitant]
     Route: 048
     Dates: start: 20070601
  4. ORENCIA [Concomitant]

REACTIONS (9)
  - BACK PAIN [None]
  - CHEST PAIN [None]
  - DRUG INEFFECTIVE [None]
  - EPISTAXIS [None]
  - MEDICAL DEVICE REMOVAL [None]
  - RHEUMATOID ARTHRITIS [None]
  - SKIN DISCOLOURATION [None]
  - SKIN ULCER [None]
  - SWOLLEN TONGUE [None]
